FAERS Safety Report 9150664 (Version 1)
Quarter: 2013Q1

REPORT INFORMATION
  Report Type: Spontaneous
  Country: FR (occurrence: FR)
  Receive Date: 20130308
  Receipt Date: 20130308
  Transmission Date: 20140127
  Serious: Yes (Hospitalization)
  Sender: FDA-Public Use
  Company Number: FR-TEVA-389332ISR

PATIENT
  Age: 27 Year
  Sex: Female

DRUGS (2)
  1. ESTREVA [Suspect]
     Indication: ACNE
     Dosage: LONG TERM TREATMENT
     Route: 048
     Dates: end: 20110120
  2. ANDROCUR [Suspect]
     Dosage: LONG TERM TREATMENT
     Route: 048
     Dates: end: 20110120

REACTIONS (2)
  - Thrombocytopenia [Not Recovered/Not Resolved]
  - Idiopathic thrombocytopenic purpura [Not Recovered/Not Resolved]
